FAERS Safety Report 21825654 (Version 9)
Quarter: 2024Q1

REPORT INFORMATION
  Report Type: Report from Study
  Country: US (occurrence: US)
  Receive Date: 20230105
  Receipt Date: 20240318
  Transmission Date: 20240410
  Serious: No
  Sender: FDA-Public Use
  Company Number: US-ACADIA PHARMACEUTICALS INC.-ACA-2022-PIM-004327

PATIENT
  Sex: Male

DRUGS (5)
  1. NUPLAZID [Suspect]
     Active Substance: PIMAVANSERIN TARTRATE
     Indication: Parkinson^s disease
     Dosage: 34 MILLIGRAM, QD
     Route: 048
     Dates: start: 20210408
  2. NUPLAZID [Suspect]
     Active Substance: PIMAVANSERIN TARTRATE
     Dosage: 34 MILLIGRAM, QD
     Route: 048
  3. NUPLAZID [Suspect]
     Active Substance: PIMAVANSERIN TARTRATE
     Dosage: 34 MILLIGRAM, QD
     Route: 048
  4. NUPLAZID [Suspect]
     Active Substance: PIMAVANSERIN TARTRATE
     Dosage: 34 MILLIGRAM, QD
     Route: 048
  5. NUPLAZID [Suspect]
     Active Substance: PIMAVANSERIN TARTRATE
     Dosage: 34 MILLIGRAM, QD
     Route: 048

REACTIONS (15)
  - Product dose omission issue [Unknown]
  - Product dose omission in error [Recovered/Resolved]
  - Product dose omission issue [Recovered/Resolved]
  - Nonspecific reaction [Recovered/Resolved]
  - Product dose omission issue [Recovered/Resolved]
  - Nonspecific reaction [Unknown]
  - Nonspecific reaction [Unknown]
  - Product dose omission issue [Recovered/Resolved]
  - Nonspecific reaction [Unknown]
  - Product dose omission issue [Recovered/Resolved]
  - Product dose omission issue [Recovered/Resolved]
  - Nonspecific reaction [Recovered/Resolved]
  - Product dose omission issue [Unknown]
  - Product dose omission issue [Recovered/Resolved]
  - Nonspecific reaction [Not Recovered/Not Resolved]
